FAERS Safety Report 4745704-6 (Version None)
Quarter: 2005Q3

REPORT INFORMATION
  Report Type: 
  Country: None (occurrence: None)
  Receive Date: 20050811
  Receipt Date: 20050801
  Transmission Date: 20060218
  Serious: Yes (Hospitalization)
  Sender: FDA-Public Use
  Company Number: 215662

PATIENT
  Age: 64 Year
  Sex: Male
  Weight: 72.2 kg

DRUGS (6)
  1. MABTHERA(RITUXIMAB) CONC FOR SOLUTION FOR INFUSION [Suspect]
     Indication: CHRONIC LYMPHOCYTIC LEUKAEMIA
     Dosage: 713 MG INTRAVENOUS
     Route: 042
     Dates: start: 20050526, end: 20050622
  2. CYCLOPHOSPHAMIDE [Suspect]
     Indication: CHRONIC LYMPHOCYTIC LEUKAEMIA
     Dosage: 475 MG, INTRAVENOUS
     Route: 042
     Dates: start: 20050526, end: 20050528
  3. FLUDARABINE PHOSPHATE [Suspect]
     Indication: CHRONIC LYMPHOCYTIC LEUKAEMIA
     Dosage: 47.5 MG, INTRAVENOUS
     Route: 042
  4. BACTRIM [Concomitant]
  5. ACYCLOVIR [Concomitant]
  6. BLOOD PRODUCTS (BLOOD PRODUCTS NOS) [Concomitant]

REACTIONS (9)
  - ATELECTASIS [None]
  - FEBRILE NEUTROPENIA [None]
  - GENERAL PHYSICAL HEALTH DETERIORATION [None]
  - HAEMOGLOBIN DECREASED [None]
  - PLATELET COUNT DECREASED [None]
  - PLEURAL EFFUSION [None]
  - PLEURAL FIBROSIS [None]
  - RED BLOOD CELL COUNT DECREASED [None]
  - SEPSIS [None]
